FAERS Safety Report 10423982 (Version 1)
Quarter: 2014Q3

REPORT INFORMATION
  Report Type: Spontaneous
  Country: US (occurrence: None)
  Receive Date: 20140722
  Receipt Date: 20140722
  Transmission Date: 20150326
  Serious: No
  Sender: FDA-Public Use
  Company Number: AEGR000501

PATIENT
  Age: 58 Year
  Sex: Male
  Weight: 95.7 kg

DRUGS (2)
  1. RAMIPRIL (RAMIPRIL) [Concomitant]
     Active Substance: RAMIPRIL
  2. JUXTAPID [Suspect]
     Active Substance: LOMITAPIDE MESYLATE
     Indication: HYPERCHOLESTEROLAEMIA
     Route: 048
     Dates: start: 20131216, end: 20140128

REACTIONS (2)
  - Constipation [None]
  - Off label use [None]

NARRATIVE: CASE EVENT DATE: 20131216
